FAERS Safety Report 5248918-4 (Version None)
Quarter: 2007Q1

REPORT INFORMATION
  Report Type: 
  Country: None (occurrence: None)
  Receive Date: 20070222
  Receipt Date: 20070212
  Transmission Date: 20070707
  Serious: Yes (Other)
  Sender: FDA-Public Use
  Company Number: 2006BI018675

PATIENT
  Age: 43 Year
  Sex: Female

DRUGS (5)
  1. AVONEX [Suspect]
     Indication: MULTIPLE SCLEROSIS
     Dosage: 30 UG;QW;IM
     Route: 030
     Dates: start: 20000101
  2. EMEND [Concomitant]
  3. DECADRON [Concomitant]
  4. COMPAZINE [Concomitant]
  5. ATIVAN [Concomitant]

REACTIONS (1)
  - BREAST CANCER STAGE II [None]
